FAERS Safety Report 23916305 (Version 2)
Quarter: 2024Q2

REPORT INFORMATION
  Report Type: Spontaneous
  Country: US (occurrence: US)
  Receive Date: 20240529
  Receipt Date: 20240531
  Transmission Date: 20240716
  Serious: Yes (Hospitalization)
  Sender: FDA-Public Use
  Company Number: US-PFIZER INC-PV202400068356

PATIENT
  Age: 85 Year
  Sex: Male
  Weight: 64 kg

DRUGS (5)
  1. VYNDAMAX [Suspect]
     Active Substance: TAFAMIDIS
     Indication: Atrial fibrillation
     Dosage: 61MG TAKE 1 TABLET DAILY
     Route: 048
  2. VYNDAMAX [Suspect]
     Active Substance: TAFAMIDIS
     Indication: Chronic left ventricular failure
  3. VYNDAMAX [Suspect]
     Active Substance: TAFAMIDIS
     Indication: Pericardial effusion
  4. VYNDAMAX [Suspect]
     Active Substance: TAFAMIDIS
     Indication: Acquired ATTR amyloidosis
  5. ELIQUIS [Concomitant]
     Active Substance: APIXABAN
     Indication: Anticoagulant therapy
     Dosage: TAKE 1 TABLET (5 MG TOTAL) BY MOUTH 2 (TWO) TIMES DAILY
     Route: 048

REACTIONS (5)
  - Pulmonary embolism [Unknown]
  - Sepsis [Unknown]
  - Blood urea abnormal [Unknown]
  - Blood glucose abnormal [Unknown]
  - Product prescribing error [Unknown]
